FAERS Safety Report 24914801 (Version 1)
Quarter: 2025Q1

REPORT INFORMATION
  Report Type: Spontaneous
  Country: US (occurrence: US)
  Receive Date: 20250203
  Receipt Date: 20250203
  Transmission Date: 20250409
  Serious: No
  Sender: ROCHE
  Company Number: US-ROCHE-10000191800

PATIENT
  Sex: Female

DRUGS (1)
  1. OCREVUS [Suspect]
     Active Substance: OCRELIZUMAB
     Indication: Multiple sclerosis
     Route: 040
     Dates: start: 202501

REACTIONS (9)
  - Nausea [Unknown]
  - Headache [Unknown]
  - Incorrect drug administration rate [Unknown]
  - Malaise [Unknown]
  - Dizziness [Unknown]
  - Muscular weakness [Unknown]
  - Hot flush [Unknown]
  - Hyperhidrosis [Unknown]
  - Vomiting [Unknown]
